FAERS Safety Report 6418728-0 (Version None)
Quarter: 2009Q4

REPORT INFORMATION
  Report Type: 
  Country: None (occurrence: None)
  Receive Date: 20091026
  Receipt Date: 20091014
  Transmission Date: 20100525
  Serious: Yes (Death, Hospitalization)
  Sender: FDA-Public Use
  Company Number: 2009AC000224

PATIENT
  Age: 61 Year
  Sex: Male

DRUGS (56)
  1. DIGOXIN [Suspect]
     Indication: HEART RATE IRREGULAR
     Dosage: 0.25 MG;QD;PO
     Route: 048
  2. DIGOXIN [Suspect]
     Dosage: 0.125 MG;QD;PO
     Route: 048
  3. COREG [Concomitant]
  4. COUMADIN [Concomitant]
  5. NEXIUM [Concomitant]
  6. NABUMETONE [Concomitant]
  7. FOLIC ACID [Concomitant]
  8. ARAVA [Concomitant]
  9. LORAZEPAM [Concomitant]
  10. METHOTREXATE [Concomitant]
  11. LOMOTIL [Concomitant]
  12. DOXICYCLINE [Concomitant]
  13. LASIX [Concomitant]
  14. OXYGEN [Concomitant]
  15. JANTOVEN [Concomitant]
  16. NITROGLYCERIN [Concomitant]
  17. MOBIC [Concomitant]
  18. HYDROCODONE [Concomitant]
  19. ALEVE [Concomitant]
  20. LIPITOR [Concomitant]
  21. POTASSIUM CHLORIDE [Concomitant]
  22. NABUMETONE [Concomitant]
  23. PREDNISONE [Concomitant]
  24. NITROSTAT [Concomitant]
  25. PANNAZ [Concomitant]
  26. DOCUSTATE [Concomitant]
  27. BIDEX [Concomitant]
  28. WARFARIN SODIUM [Concomitant]
  29. CIPROFLOXACIN [Concomitant]
  30. FOLBEE [Concomitant]
  31. LEVAQUIN [Concomitant]
  32. AMOXIC/CLAV [Concomitant]
  33. LORATADINE [Concomitant]
  34. AVELOX [Concomitant]
  35. DEXAMETHASONE TAB [Concomitant]
  36. PROMETHAZINE [Concomitant]
  37. ONDANSETRON [Concomitant]
  38. CARVEDILOL [Concomitant]
  39. GRIS-PEG [Concomitant]
  40. MEXILETINE HYDROCHLORIDE [Concomitant]
  41. TRAMADOL HCL [Concomitant]
  42. ALBUTEROL [Concomitant]
  43. DIPHENOXYLATE HCL + ATROPINE SULFATE [Concomitant]
  44. UNIPHYL [Concomitant]
  45. ALLEGRA D 24 HOUR [Concomitant]
  46. TARCEVA [Concomitant]
  47. FLUCONAZOLE [Concomitant]
  48. CEPHALEXIN [Concomitant]
  49. ANZEMET [Concomitant]
  50. AMIODARONE HCL [Concomitant]
  51. PLAVIX [Concomitant]
  52. RANITIDINE [Concomitant]
  53. GUAIFENEX [Concomitant]
  54. CEFUROXIME [Concomitant]
  55. NITROGLYCERIN [Concomitant]
  56. LORAZEPAM [Concomitant]

REACTIONS (16)
  - ABDOMINAL DISTENSION [None]
  - ACUTE MYOCARDIAL INFARCTION [None]
  - ACUTE PULMONARY OEDEMA [None]
  - ANXIETY [None]
  - ASTHENIA [None]
  - CHRONIC OBSTRUCTIVE PULMONARY DISEASE [None]
  - ECONOMIC PROBLEM [None]
  - HEADACHE [None]
  - HEMIPARESIS [None]
  - JAUNDICE [None]
  - LEFT VENTRICULAR DYSFUNCTION [None]
  - MULTIPLE INJURIES [None]
  - PAIN [None]
  - RENAL FAILURE [None]
  - SUPRAVENTRICULAR EXTRASYSTOLES [None]
  - THERAPEUTIC AGENT TOXICITY [None]
